FAERS Safety Report 12809295 (Version 1)
Quarter: 2016Q4

REPORT INFORMATION
  Report Type: Spontaneous
  Country: FR (occurrence: FR)
  Receive Date: 20161004
  Receipt Date: 20161004
  Transmission Date: 20170207
  Serious: Yes (Hospitalization, Other)
  Sender: FDA-Public Use
  Company Number: FR-BAXTER-2016BAX049289

PATIENT
  Age: 53 Year
  Sex: Female

DRUGS (30)
  1. UROMITEXAN 5 G/50 ML, SOLUTION INJECTABLE POUR PERFUSION EN FLACON [Suspect]
     Active Substance: MESNA
     Indication: PROPHYLAXIS URINARY TRACT INFECTION
     Route: 042
     Dates: start: 20160719, end: 20160719
  2. ENDOXAN 1000 MG, POUDRE POUR SOLUTION INJECTABLE [Suspect]
     Active Substance: CYCLOPHOSPHAMIDE
     Indication: HODGKIN^S DISEASE STAGE IV
     Route: 042
     Dates: start: 20160719, end: 20160719
  3. ETOPOSIDE MYLAN [Suspect]
     Active Substance: ETOPOSIDE
     Route: 065
     Dates: start: 20160816, end: 20160817
  4. CORTANCYL [Suspect]
     Active Substance: PREDNISONE
     Indication: HODGKIN^S DISEASE STAGE IV
     Route: 048
     Dates: start: 20160720, end: 20160725
  5. INEXIUM [Concomitant]
     Active Substance: ESOMEPRAZOLE
     Indication: PRODUCT USED FOR UNKNOWN INDICATION
     Dosage: (ONCE DAILY IN THE MORNING); LONG-TERM
     Route: 065
  6. EFFEXOR [Concomitant]
     Active Substance: VENLAFAXINE HYDROCHLORIDE
     Indication: PRODUCT USED FOR UNKNOWN INDICATION
     Dosage: 1 DF IN THE MORNING AND A HALF DF AT MIDDAY, EVERY DAY;LONG-TERM
     Route: 065
  7. UROMITEXAN 5 G/50 ML, SOLUTION INJECTABLE POUR PERFUSION EN FLACON [Suspect]
     Active Substance: MESNA
     Indication: OFF LABEL USE
     Route: 042
     Dates: start: 20160816, end: 20160816
  8. EMEND [Suspect]
     Active Substance: APREPITANT
     Route: 048
     Dates: start: 20160816, end: 20160816
  9. EMEND [Suspect]
     Active Substance: APREPITANT
     Indication: PROPHYLAXIS OF NAUSEA AND VOMITING
     Dosage: DAY 2
     Route: 048
     Dates: start: 20160720, end: 20160720
  10. ONDANSETRON ARROW [Suspect]
     Active Substance: ONDANSETRON
     Route: 048
     Dates: start: 20160816, end: 20160817
  11. UROMITEXAN 600 MG, COMPRIM? [Suspect]
     Active Substance: MESNA
     Indication: PROPHYLAXIS URINARY TRACT INFECTION
     Route: 048
     Dates: start: 20160719, end: 20160719
  12. DOXORUBICIN TEVA [Suspect]
     Active Substance: DOXORUBICIN
     Route: 065
     Dates: start: 20160816, end: 20160816
  13. METHYLPREDNISOLONE MYLAN [Suspect]
     Active Substance: METHYLPREDNISOLONE
     Indication: HODGKIN^S DISEASE STAGE IV
     Route: 042
     Dates: start: 20160719, end: 20160719
  14. METHYLPREDNISOLONE MYLAN [Suspect]
     Active Substance: METHYLPREDNISOLONE
     Route: 042
     Dates: start: 20160816, end: 20160816
  15. EMEND [Suspect]
     Active Substance: APREPITANT
     Route: 048
     Dates: start: 20160817, end: 20160817
  16. ONDANSETRON ARROW [Suspect]
     Active Substance: ONDANSETRON
     Indication: PROPHYLAXIS OF NAUSEA AND VOMITING
     Route: 048
     Dates: start: 20160719, end: 20160721
  17. BACTRIM [Concomitant]
     Active Substance: SULFAMETHOXAZOLE\TRIMETHOPRIM
     Indication: ANTIBIOTIC PROPHYLAXIS
     Dosage: THRICE WEEKLY (MONDAY, TUESDAY, FRIDAY)
     Route: 065
     Dates: start: 20160817
  18. DIFFU K [Concomitant]
     Active Substance: POTASSIUM CHLORIDE
     Indication: PRODUCT USED FOR UNKNOWN INDICATION
     Dosage: ONCE IN THE EVENING; LONG TERM
     Route: 065
  19. ENDOXAN 1000 MG, POUDRE POUR SOLUTION INJECTABLE [Suspect]
     Active Substance: CYCLOPHOSPHAMIDE
     Route: 042
     Dates: start: 20160816, end: 20160816
  20. NATULAN [Suspect]
     Active Substance: PROCARBAZINE HYDROCHLORIDE
     Indication: HODGKIN^S DISEASE STAGE IV
     Route: 048
     Dates: start: 20160719, end: 20160725
  21. NATULAN [Suspect]
     Active Substance: PROCARBAZINE HYDROCHLORIDE
     Route: 048
     Dates: start: 20160816, end: 20160822
  22. XANAX [Concomitant]
     Active Substance: ALPRAZOLAM
     Indication: PRODUCT USED FOR UNKNOWN INDICATION
     Dosage: (ONCE DAILY IN THE MORNING); LONG TERM
     Route: 065
  23. UROMITEXAN 600 MG, COMPRIM? [Suspect]
     Active Substance: MESNA
     Indication: OFF LABEL USE
     Route: 048
     Dates: start: 20160816, end: 20160816
  24. EMEND [Suspect]
     Active Substance: APREPITANT
     Indication: PROPHYLAXIS OF NAUSEA AND VOMITING
     Dosage: DAY 1
     Route: 048
     Dates: start: 20160719, end: 20160719
  25. ETOPOSIDE MYLAN [Suspect]
     Active Substance: ETOPOSIDE
     Indication: HODGKIN^S DISEASE STAGE IV
     Dosage: SOLUTION FOR DILUTION FOR INFUSION
     Route: 065
     Dates: start: 20160719, end: 20160721
  26. CORTANCYL [Suspect]
     Active Substance: PREDNISONE
     Route: 048
     Dates: start: 20160817, end: 20160817
  27. EMEND [Suspect]
     Active Substance: APREPITANT
     Route: 048
     Dates: start: 20160721, end: 20160721
  28. DOXORUBICIN TEVA [Suspect]
     Active Substance: DOXORUBICIN
     Indication: HODGKIN^S DISEASE STAGE IV
     Route: 065
     Dates: start: 20160719, end: 20160719
  29. ZELITREX [Concomitant]
     Active Substance: VALACYCLOVIR HYDROCHLORIDE
     Indication: ANTIVIRAL PROPHYLAXIS
     Route: 048
     Dates: start: 20160816
  30. OFLOXACIN MYLAN [Concomitant]
     Active Substance: OFLOXACIN
     Indication: ANTIBIOTIC PROPHYLAXIS
     Route: 048
     Dates: start: 20160810

REACTIONS (7)
  - Hypotension [Unknown]
  - Escherichia bacteraemia [Unknown]
  - Febrile bone marrow aplasia [Unknown]
  - Rash maculo-papular [Recovered/Resolved]
  - Device related thrombosis [Unknown]
  - Tachycardia [Unknown]
  - Erythema [Unknown]

NARRATIVE: CASE EVENT DATE: 201607
